FAERS Safety Report 19457552 (Version 1)
Quarter: 2021Q2

REPORT INFORMATION
  Report Type: Spontaneous
  Country: CA (occurrence: CA)
  Receive Date: 20210624
  Receipt Date: 20210624
  Transmission Date: 20210717
  Serious: Yes (Hospitalization)
  Sender: FDA-Public Use
  Company Number: CA-BAYER-2021-159420

PATIENT
  Age: 46 Year
  Sex: Male

DRUGS (1)
  1. NAPROXEN SODIUM ({= 220 MG) [Suspect]
     Active Substance: NAPROXEN SODIUM
     Indication: CALCULUS URINARY
     Dosage: UNK
     Route: 048

REACTIONS (3)
  - Duodenal ulcer [Unknown]
  - Gastric ulcer [Unknown]
  - Melaena [Unknown]
